FAERS Safety Report 11311253 (Version 1)
Quarter: 2015Q3

REPORT INFORMATION
  Report Type: Spontaneous
  Country: US (occurrence: None)
  Receive Date: 20150724
  Receipt Date: 20150724
  Transmission Date: 20151125
  Serious: Yes (Hospitalization)
  Sender: FDA-Public Use
  Company Number: None

PATIENT
  Age: 79 Year
  Sex: Male
  Weight: 65.59 kg

DRUGS (5)
  1. CYTARABINE. [Suspect]
     Active Substance: CYTARABINE
     Dates: end: 20150708
  2. RITUXIMAB (MOAB C2B8 ANTI CD20, CHIMERIC) [Suspect]
     Active Substance: RITUXIMAB
     Dates: end: 20150528
  3. VINCRISTINE SULFATE. [Suspect]
     Active Substance: VINCRISTINE SULFATE
     Dates: end: 20150529
  4. METHOTREXATE [Suspect]
     Active Substance: METHOTREXATE
     Dates: end: 20150529
  5. PROCARBAZINE [Suspect]
     Active Substance: PROCARBAZINE
     Dates: end: 20150521

REACTIONS (7)
  - White blood cell count decreased [None]
  - Anaemia [None]
  - Platelet count decreased [None]
  - Lymphocyte count decreased [None]
  - Syncope [None]
  - Neutrophil count decreased [None]
  - Urinary incontinence [None]

NARRATIVE: CASE EVENT DATE: 20150717
